FAERS Safety Report 15764066 (Version 2)
Quarter: 2019Q1

REPORT INFORMATION
  Report Type: Spontaneous
  Country: US (occurrence: US)
  Receive Date: 20181227
  Receipt Date: 20190131
  Transmission Date: 20190417
  Serious: No
  Sender: FDA-Public Use
  Company Number: US-ASTRAZENECA-2018SF56534

PATIENT
  Age: 67 Year
  Sex: Male
  Weight: 101.6 kg

DRUGS (4)
  1. VITAMINS NOS [Concomitant]
     Active Substance: VITAMINS
  2. METFORMIN [Concomitant]
     Active Substance: METFORMIN HYDROCHLORIDE
  3. GLYBURIDE. [Concomitant]
     Active Substance: GLYBURIDE
  4. BYDUREON BCISE [Suspect]
     Active Substance: EXENATIDE
     Route: 058
     Dates: start: 201810

REACTIONS (8)
  - Blood glucose decreased [Unknown]
  - Device malfunction [Unknown]
  - Product dose omission [Unknown]
  - Paraesthesia [Unknown]
  - Wrong technique in product usage process [Unknown]
  - Memory impairment [Unknown]
  - Weight decreased [Unknown]
  - Intentional device misuse [Unknown]

NARRATIVE: CASE EVENT DATE: 2018
